FAERS Safety Report 25648384 (Version 1)
Quarter: 2025Q3

REPORT INFORMATION
  Report Type: Spontaneous
  Country: GB (occurrence: GB)
  Receive Date: 20250806
  Receipt Date: 20250806
  Transmission Date: 20251021
  Serious: Yes (Other)
  Sender: ORGANON
  Company Number: None

PATIENT
  Age: 67 Year
  Sex: Female
  Weight: 78 kg

DRUGS (14)
  1. EZETIMIBE [Suspect]
     Active Substance: EZETIMIBE
     Indication: Ill-defined disorder
     Dosage: 10 MILLIGRAM, QD
     Dates: start: 20250709, end: 20250730
  2. CLOBETASONE BUTYRATE [Concomitant]
     Active Substance: CLOBETASONE BUTYRATE
     Indication: Ill-defined disorder
     Dosage: APPLY ONCE DAILY FOR UP TO A WEEK (EARS)
     Dates: start: 20250512, end: 20250609
  3. MOMETASONE FUROATE [Concomitant]
     Active Substance: MOMETASONE FUROATE
     Indication: Ill-defined disorder
     Dosage: APPLY ONCE DAILY FOR UP TO TWO WEEKS (BODY)
     Dates: start: 20250512, end: 20250609
  4. ESTRADIOL [Concomitant]
     Active Substance: ESTRADIOL
     Indication: Ill-defined disorder
     Dosage: TAKE ONE DAILY
     Dates: start: 20250523
  5. BEMPEDOIC ACID [Concomitant]
     Active Substance: BEMPEDOIC ACID
     Indication: Ill-defined disorder
     Dosage: TAKE ONE DAILY
     Dates: start: 20250730
  6. CALCIUM CARBONATE [Concomitant]
     Active Substance: CALCIUM CARBONATE
     Indication: Ill-defined disorder
     Dosage: TAKE ONE TWICE DAILY
     Dates: start: 20230612
  7. AMITRIPTYLINE HYDROCHLORIDE [Concomitant]
     Active Substance: AMITRIPTYLINE HYDROCHLORIDE
     Indication: Ill-defined disorder
     Dosage: TAKE TWO AT NIGHT
     Dates: start: 20230612
  8. APRODERM [Concomitant]
     Indication: Ill-defined disorder
     Dosage: APPLY TWICE A DAY
     Dates: start: 20230612
  9. INDAPAMIDE [Concomitant]
     Active Substance: INDAPAMIDE
     Indication: Ill-defined disorder
     Dosage: TAKE ONE EVERY MORNING
     Dates: start: 20230612
  10. OXYBUTYNIN [Concomitant]
     Active Substance: OXYBUTYNIN
     Indication: Ill-defined disorder
     Dosage: TAKE ONE AS DIRECTED
     Dates: start: 20230612
  11. ACETAMINOPHEN [Concomitant]
     Active Substance: ACETAMINOPHEN
     Indication: Ill-defined disorder
     Dosage: 1-2 TO BE TAKEN FOUR TIMES DAILY WHEN REQUIRED
     Dates: start: 20230612
  12. LERCANIDIPINE HYDROCHLORIDE [Concomitant]
     Active Substance: LERCANIDIPINE HYDROCHLORIDE
     Indication: Ill-defined disorder
     Dosage: TAKE TWO DAILY
     Dates: start: 20231212
  13. FLEXITOL [UREA] [Concomitant]
     Indication: Ill-defined disorder
     Dosage: USE AS DIRECTED
     Dates: start: 20241024
  14. OZEMPIC [Concomitant]
     Active Substance: SEMAGLUTIDE
     Indication: Ill-defined disorder
     Dosage: INJECT 0.25MG SUBCUT ONCE A WEEK
     Route: 058
     Dates: start: 20241113

REACTIONS (6)
  - Chest discomfort [Unknown]
  - Gastrooesophageal reflux disease [Recovering/Resolving]
  - Dyspepsia [Unknown]
  - Fatigue [Unknown]
  - Malaise [Unknown]
  - Abdominal pain upper [Recovering/Resolving]
